FAERS Safety Report 9051012 (Version 2)
Quarter: 2013Q1

REPORT INFORMATION
  Report Type: Report from Study
  Country: US (occurrence: US)
  Receive Date: 20130205
  Receipt Date: 20130213
  Transmission Date: 20140127
  Serious: Yes (Other)
  Sender: FDA-Public Use
  Company Number: US-NAPPMUNDI-USA-2013-0098157

PATIENT
  Sex: Male

DRUGS (2)
  1. OXYCONTIN (NDA 22-272) [Suspect]
     Indication: BACK PAIN
     Dosage: 120 MG, Q12H
     Route: 048
     Dates: start: 201205
  2. OXYCONTIN (NDA 22-272) [Suspect]
     Indication: NECK PAIN

REACTIONS (2)
  - Nerve injury [Not Recovered/Not Resolved]
  - Osteomyelitis [Not Recovered/Not Resolved]
